FAERS Safety Report 4456132-5 (Version None)
Quarter: 2004Q3

REPORT INFORMATION
  Report Type: 
  Country: None (occurrence: None)
  Receive Date: 20040921
  Receipt Date: 20040907
  Transmission Date: 20050211
  Serious: Yes (Hospitalization, Other)
  Sender: FDA-Public Use
  Company Number: HQWYE903207JUL04

PATIENT
  Age: 66 Year
  Sex: Female
  Weight: 114 kg

DRUGS (18)
  1. RAPAMUNE [Suspect]
     Indication: RENAL TRANSPLANT
     Dosage: 2 MG 1X PER 1 DAY, ORAL
     Route: 048
     Dates: start: 20040630
  2. TACROLIMUS (TACROLIMUS) [Concomitant]
  3. ACETAMINOPHEN [Concomitant]
  4. ATENOLOL [Concomitant]
  5. AZITHROMYCIN [Concomitant]
  6. CLONIDINE [Concomitant]
  7. CLOTRIMAZOLE (CLOTRIMAZOLE) [Concomitant]
  8. DIPHENHYDRAMINE HCL [Concomitant]
  9. HYDRALAZINE HCL TAB [Concomitant]
  10. LANSOPRAZOLE [Concomitant]
  11. LOSARTAN (LOSARTAN) [Concomitant]
  12. METRONIDAZOLE [Concomitant]
  13. MYCOPHENOLATE MOFETIL (MYCOPHENOLATE MOFETIL) [Concomitant]
  14. NIFEDIPINE [Concomitant]
  15. ONDANSETRON HCL [Concomitant]
  16. PREDNISONE [Concomitant]
  17. VALGANCICLOVIR (VALGANCICLOVIR) [Concomitant]
  18. SODIUM BICARBONATE IN PLASTIC CONTAINER [Concomitant]

REACTIONS (1)
  - CONVULSION [None]
